FAERS Safety Report 24420455 (Version 5)
Quarter: 2025Q4

REPORT INFORMATION
  Report Type: Spontaneous
  Country: US (occurrence: US)
  Receive Date: 20241010
  Receipt Date: 20251204
  Transmission Date: 20260118
  Serious: No
  Sender: BIOGEN
  Company Number: US-BIOGEN-2024BI01260576

PATIENT
  Age: 49 Year
  Sex: Female
  Weight: 53.601 kg

DRUGS (6)
  1. SKYCLARYS [Suspect]
     Active Substance: OMAVELOXOLONE
     Indication: Friedreich^s ataxia
     Dosage: EXPIRY DATE: 31-JAN-2029?DOSE REDUCED
  2. SKYCLARYS [Suspect]
     Active Substance: OMAVELOXOLONE
     Dates: start: 20240119
  3. SKYCLARYS [Suspect]
     Active Substance: OMAVELOXOLONE
     Dates: start: 20240119
  4. SKYCLARYS [Suspect]
     Active Substance: OMAVELOXOLONE
     Dates: start: 20240119
  5. SKYCLARYS [Suspect]
     Active Substance: OMAVELOXOLONE
  6. SKYCLARYS [Suspect]
     Active Substance: OMAVELOXOLONE

REACTIONS (9)
  - Blood triglycerides increased [Unknown]
  - Arthralgia [Unknown]
  - Blood sodium decreased [Not Recovered/Not Resolved]
  - Alanine aminotransferase increased [Unknown]
  - Gastroenteritis viral [Unknown]
  - Aspartate aminotransferase increased [Unknown]
  - Blood chloride decreased [Unknown]
  - Drug intolerance [Unknown]
  - Liver function test decreased [Unknown]

NARRATIVE: CASE EVENT DATE: 20240201
